FAERS Safety Report 23476450 (Version 1)
Quarter: 2024Q1

REPORT INFORMATION
  Report Type: Report from Study
  Country: US (occurrence: US)
  Receive Date: 20240204
  Receipt Date: 20240204
  Transmission Date: 20240409
  Serious: No
  Sender: FDA-Public Use
  Company Number: US-EXELIXIS-CABO-23062785

PATIENT
  Sex: Female
  Weight: 58.05 kg

DRUGS (1)
  1. CABOMETYX [Suspect]
     Active Substance: CABOZANTINIB S-MALATE
     Indication: Renal cancer
     Dosage: 60 MG, QD
     Route: 048
     Dates: start: 20210208

REACTIONS (4)
  - Protein total decreased [Unknown]
  - Limb discomfort [Unknown]
  - Anaemia [Unknown]
  - Diarrhoea [Unknown]
